FAERS Safety Report 11321864 (Version 2)
Quarter: 2015Q3

REPORT INFORMATION
  Report Type: Spontaneous
  Country: JP (occurrence: JP)
  Receive Date: 20150729
  Receipt Date: 20150729
  Transmission Date: 20151125
  Serious: Yes (Other)
  Sender: FDA-Public Use
  Company Number: JP-BAYER-2015-381177

PATIENT
  Age: 38 Year
  Sex: Female

DRUGS (1)
  1. ACETYLSALICYLIC ACID({=100 MG) [Suspect]
     Active Substance: ASPIRIN
     Indication: PROTEIN S DECREASED
     Dosage: UNK
     Route: 048

REACTIONS (3)
  - Maternal exposure during pregnancy [None]
  - Vascular pseudoaneurysm [Recovered/Resolved]
  - Intra-abdominal haemorrhage [None]
